FAERS Safety Report 7517862-1 (Version None)
Quarter: 2011Q2

REPORT INFORMATION
  Report Type: 
  Country: None (occurrence: None)
  Receive Date: 20110602
  Receipt Date: 20110524
  Transmission Date: 20111010
  Serious: Yes (Life-Threatening, Hospitalization)
  Sender: FDA-Public Use
  Company Number: US-BRISTOL-MYERS SQUIBB COMPANY-15665268

PATIENT
  Age: 73 Year
  Sex: Female
  Weight: 51 kg

DRUGS (10)
  1. CARBOPLATIN [Suspect]
     Indication: NON-SMALL CELL LUNG CANCER
     Dosage: DURATION:41 DAYS
     Route: 042
     Dates: start: 20110210, end: 20110324
  2. PEMETREXED DISODIUM [Suspect]
     Indication: NON-SMALL CELL LUNG CANCER
     Route: 042
     Dates: start: 20110210, end: 20110324
  3. LORAZEPAM [Concomitant]
     Route: 048
  4. METOPROLOL TARTRATE [Concomitant]
  5. ASPIRIN [Concomitant]
     Route: 048
  6. MIRTAZAPINE [Concomitant]
     Dosage: 1DF=30.UNIT NOT SPECIFIED;1 IN 1 HS
     Route: 048
  7. TERIPARATIDE [Concomitant]
     Route: 058
  8. COMBIGAN [Concomitant]
     Dosage: 1 OTHER BOTH EYES 1 DROP
     Route: 047
  9. CETUXIMAB [Suspect]
     Indication: NON-SMALL CELL LUNG CANCER
     Dosage: DURATION:48 DAYS
     Route: 042
     Dates: start: 20110210, end: 20110331
  10. NORCO [Concomitant]
     Route: 065

REACTIONS (3)
  - RESTRICTIVE CARDIOMYOPATHY [None]
  - RESPIRATORY FAILURE [None]
  - SEPSIS [None]
